FAERS Safety Report 6469397-5 (Version None)
Quarter: 2009Q4

REPORT INFORMATION
  Report Type: 
  Country: None (occurrence: None)
  Receive Date: 20091203
  Receipt Date: 20091123
  Transmission Date: 20100525
  Serious: No
  Sender: FDA-Public Use
  Company Number: FR-ELI_LILLY_AND_COMPANY-FR200909004269

PATIENT
  Age: 87 Year
  Sex: Female
  Weight: 67 kg

DRUGS (8)
  1. FORTEO [Suspect]
     Indication: OSTEOPOROSIS
     Dosage: 20 UG, DAILY (1/D)
     Route: 058
     Dates: start: 20090616, end: 20090917
  2. PRAVASTATIN [Concomitant]
     Dosage: 20 MG, UNK
     Route: 048
  3. CERVOXAN [Concomitant]
     Dosage: 60 MG, DAILY (1/D)
     Route: 048
  4. PIRACETAM [Concomitant]
     Dosage: 800 MG, 2/D
     Route: 048
  5. ZOPICLONE [Concomitant]
     Dosage: 7.5 MG, DAILY (1/D)
     Route: 048
  6. TOPALGIC [Concomitant]
     Dosage: 100 MG, 2/D
     Route: 048
  7. SPAGULAX [Concomitant]
     Dosage: 2 D/F, UNK
     Route: 048
  8. CALCIUM D3 [Concomitant]

REACTIONS (1)
  - PALPITATIONS [None]
